FAERS Safety Report 23682573 (Version 1)
Quarter: 2024Q1

REPORT INFORMATION
  Report Type: Spontaneous
  Country: IR (occurrence: IR)
  Receive Date: 20240328
  Receipt Date: 20240328
  Transmission Date: 20240410
  Serious: Yes (Life-Threatening, Hospitalization, Other)
  Sender: FDA-Public Use
  Company Number: IR-MLMSERVICE-20230811-4482121-1

PATIENT
  Age: 61 Year
  Sex: Female

DRUGS (10)
  1. ESCITALOPRAM [Suspect]
     Active Substance: ESCITALOPRAM OXALATE
     Indication: Brief psychotic disorder with marked stressors
     Dosage: AT NOON
     Route: 065
     Dates: start: 2022
  2. BIPERIDEN [Suspect]
     Active Substance: BIPERIDEN
     Indication: Catatonia
     Route: 030
  3. DIAZEPAM [Suspect]
     Active Substance: DIAZEPAM
     Indication: Catatonia
     Dosage: IN THE EVENING
     Route: 042
     Dates: start: 2022, end: 2022
  4. HALOPERIDOL [Suspect]
     Active Substance: HALOPERIDOL
     Indication: Agitation
     Dosage: ON THE SIXTH DAY
     Route: 030
     Dates: start: 2022
  5. HALOPERIDOL [Suspect]
     Active Substance: HALOPERIDOL
     Indication: Agitation
     Dosage: ON THE SIXTH DAY
     Route: 030
     Dates: start: 2022, end: 2022
  6. HALOPERIDOL [Suspect]
     Active Substance: HALOPERIDOL
     Indication: Agitation
     Route: 048
     Dates: start: 2022, end: 2022
  7. PERPHENAZINE [Suspect]
     Active Substance: PERPHENAZINE
     Indication: Brief psychotic disorder with marked stressors
     Route: 065
     Dates: start: 2022, end: 2022
  8. PERPHENAZINE [Suspect]
     Active Substance: PERPHENAZINE
     Indication: Brief psychotic disorder with marked stressors
     Route: 065
     Dates: start: 2022, end: 2022
  9. ALPRAZOLAM [Suspect]
     Active Substance: ALPRAZOLAM
     Indication: Catatonia
     Route: 048
     Dates: start: 2022
  10. ALPRAZOLAM [Suspect]
     Active Substance: ALPRAZOLAM
     Indication: Catatonia
     Route: 048
     Dates: start: 2022, end: 2022

REACTIONS (2)
  - Neuroleptic malignant syndrome [Recovered/Resolved]
  - Product use in unapproved indication [Unknown]

NARRATIVE: CASE EVENT DATE: 20220101
